FAERS Safety Report 8835819 (Version 1)
Quarter: 2012Q4

REPORT INFORMATION
  Report Type: 
  Country: GB (occurrence: GB)
  Receive Date: 20121011
  Receipt Date: 20121011
  Transmission Date: 20130627
  Serious: Yes (Life-Threatening)
  Sender: FDA-Public Use
  Company Number: GB-GLAXOSMITHKLINE-B0835373A

PATIENT
  Age: 99 Year
  Sex: Male

DRUGS (2)
  1. FONDAPARINUX SODIUM [Suspect]
     Indication: ACUTE CORONARY SYNDROME
     Route: 058
     Dates: start: 20120920, end: 20120921
  2. CLOPIDOGREL [Concomitant]

REACTIONS (2)
  - Hyperbilirubinaemia [Recovering/Resolving]
  - Jaundice [Unknown]
